FAERS Safety Report 8602741-9 (Version None)
Quarter: 2012Q3

REPORT INFORMATION
  Report Type: 
  Country: None (occurrence: None)
  Receive Date: 20120817
  Receipt Date: 20120808
  Transmission Date: 20120928
  Serious: Yes (Hospitalization)
  Sender: FDA-Public Use
  Company Number: CH-JNJFOC-20120803919

PATIENT
  Age: 79 Year
  Sex: Female

DRUGS (15)
  1. AMILORIDE HCL AND HYDROCHLOROTHIAZIDE [Suspect]
     Indication: HYPERTENSION
     Route: 048
  2. ISRADIPINE [Suspect]
     Indication: CARDIAC DISORDER
     Route: 048
  3. CARVEDILOL [Suspect]
     Indication: CARDIAC DISORDER
     Route: 048
     Dates: start: 20120501
  4. ALCOHOL [Suspect]
     Indication: PRODUCT USED FOR UNKNOWN INDICATION
     Route: 065
  5. DEANXIT [Concomitant]
     Route: 048
  6. CARVEDILOL [Suspect]
     Indication: HYPERTENSION
     Route: 048
     Dates: start: 20120501
  7. LANSOPRAZOLE [Concomitant]
     Route: 048
  8. ATORVASTATIN CALCIUM [Concomitant]
     Route: 048
  9. ASPIRIN [Concomitant]
     Route: 048
  10. POTASSIUM CHLORIDE [Concomitant]
     Route: 048
  11. GALANTAMINE HYDROBROMIDE [Suspect]
     Indication: DEMENTIA
     Route: 048
     Dates: start: 20120501, end: 20120531
  12. AMILORIDE HCL AND HYDROCHLOROTHIAZIDE [Suspect]
     Indication: CARDIAC DISORDER
     Route: 048
  13. HYDROXYUREA [Concomitant]
     Route: 048
  14. ZOLPIDEM [Concomitant]
     Route: 048
  15. ISRADIPINE [Suspect]
     Indication: HYPERTENSION
     Route: 048

REACTIONS (6)
  - SYNCOPE [None]
  - VISUAL IMPAIRMENT [None]
  - ALCOHOL INTERACTION [None]
  - BRADYCARDIA [None]
  - NAUSEA [None]
  - TREATMENT NONCOMPLIANCE [None]
